FAERS Safety Report 18329745 (Version 1)
Quarter: 2020Q3

REPORT INFORMATION
  Report Type: Spontaneous
  Country: NO (occurrence: NO)
  Receive Date: 20200930
  Receipt Date: 20200930
  Transmission Date: 20201103
  Serious: Yes (Other)
  Sender: FDA-Public Use
  Company Number: NO-PFIZER INC-2020376087

PATIENT
  Age: 39 Year
  Sex: Female
  Weight: 50 kg

DRUGS (2)
  1. NEURONTIN [Suspect]
     Active Substance: GABAPENTIN
     Indication: PAIN
     Dosage: 400 MG 3X/DAY (EVERY 8 HOURS)
     Dates: start: 20200616
  2. ESCITALOPRAM [Concomitant]
     Active Substance: ESCITALOPRAM OXALATE
     Dates: start: 20160503

REACTIONS (10)
  - Memory impairment [Recovering/Resolving]
  - Apathy [Recovered/Resolved]
  - Disturbance in attention [Recovering/Resolving]
  - Depression [Recovered/Resolved]
  - Depressed mood [Recovered/Resolved]
  - Indifference [Recovered/Resolved]
  - Memory impairment [Recovering/Resolving]
  - Emotional poverty [Recovered/Resolved]
  - Off label use [Unknown]
  - Product use in unapproved indication [Unknown]

NARRATIVE: CASE EVENT DATE: 20200815
